FAERS Safety Report 5018107-7 (Version None)
Quarter: 2006Q2

REPORT INFORMATION
  Report Type: 
  Country: None (occurrence: None)
  Receive Date: 20060605
  Receipt Date: 20060524
  Transmission Date: 20061013
  Serious: Yes (Disabling)
  Sender: FDA-Public Use
  Company Number: DE-GILEAD-2006-0009052

PATIENT
  Sex: Male

DRUGS (3)
  1. VIREAD [Suspect]
     Indication: HEPATITIS B
     Dates: start: 20041001
  2. HEPSERA [Suspect]
     Indication: HEPATITIS B
     Dates: end: 20040209
  3. ZEFFIX [Concomitant]

REACTIONS (2)
  - INNER EAR DISORDER [None]
  - TINNITUS [None]
